FAERS Safety Report 7082250-1 (Version None)
Quarter: 2010Q4

REPORT INFORMATION
  Report Type: 
  Country: None (occurrence: None)
  Receive Date: 20101104
  Receipt Date: 20101026
  Transmission Date: 20110411
  Serious: Yes (Hospitalization)
  Sender: FDA-Public Use
  Company Number: US-BIOGENIDEC-2010BI023309

PATIENT
  Age: 36 Year
  Sex: Female
  Weight: 113 kg

DRUGS (2)
  1. TYSABRI [Suspect]
     Indication: MULTIPLE SCLEROSIS
     Route: 042
     Dates: start: 20090123, end: 20100521
  2. DETROL LA [Concomitant]
     Indication: POLLAKIURIA

REACTIONS (12)
  - ABASIA [None]
  - APHASIA [None]
  - DEHYDRATION [None]
  - DIZZINESS [None]
  - DYSURIA [None]
  - FALL [None]
  - HYPERTENSION [None]
  - MUSCULAR WEAKNESS [None]
  - PYREXIA [None]
  - URINARY TRACT INFECTION [None]
  - VEIN DISORDER [None]
  - VOMITING [None]
